FAERS Safety Report 5394129-1 (Version None)
Quarter: 2007Q3

REPORT INFORMATION
  Report Type: 
  Country: None (occurrence: None)
  Receive Date: 20070723
  Receipt Date: 20070716
  Transmission Date: 20080115
  Serious: Yes (Hospitalization)
  Sender: FDA-Public Use
  Company Number: FR-BRISTOL-MYERS SQUIBB COMPANY-13848635

PATIENT
  Age: 88 Year
  Sex: Female

DRUGS (9)
  1. COUMADIN [Interacting]
     Indication: ATRIAL FIBRILLATION
     Route: 048
     Dates: start: 20070604
  2. AMARYL [Interacting]
     Indication: TYPE 2 DIABETES MELLITUS
     Dates: end: 20070608
  3. TRIATEC [Suspect]
     Dates: start: 20070604
  4. ATORVASTATIN CALCIUM [Suspect]
  5. KARDEGIC [Concomitant]
     Dates: start: 20070604, end: 20070608
  6. FUROSEMIDE [Concomitant]
  7. POTASSIUM CHLORIDE [Concomitant]
  8. ARIMIDEX [Concomitant]
  9. OMEPRAZOLE [Concomitant]

REACTIONS (2)
  - DRUG INTERACTION [None]
  - HYPOGLYCAEMIA [None]
